FAERS Safety Report 14028905 (Version 1)
Quarter: 2017Q4

REPORT INFORMATION
  Report Type: Spontaneous
  Country: US (occurrence: None)
  Receive Date: 20171002
  Receipt Date: 20171002
  Transmission Date: 20180321
  Serious: Yes (Other)
  Sender: FDA-Public Use
  Company Number: None

PATIENT
  Age: 76 Year
  Sex: Male
  Weight: 67.13 kg

DRUGS (1)
  1. TOBRAMYCIN 300MG-5ML [Suspect]
     Active Substance: TOBRAMYCIN
     Indication: SINUSITIS
     Dosage: DOSE - 1 VIAL - 5ML?FREQUENCY - BID?ROUTE - BY NASAL/SINUS RINSE ADDED TO NEIL MED
     Route: 045
     Dates: start: 20170706, end: 20170729

REACTIONS (5)
  - Dizziness [None]
  - Walking aid user [None]
  - Gait disturbance [None]
  - Oropharyngeal pain [None]
  - Vertigo [None]

NARRATIVE: CASE EVENT DATE: 20170726
